FAERS Safety Report 6932539-9 (Version None)
Quarter: 2010Q3

REPORT INFORMATION
  Report Type: 
  Country: None (occurrence: None)
  Receive Date: 20100817
  Receipt Date: 20100806
  Transmission Date: 20110219
  Serious: Yes (Other)
  Sender: FDA-Public Use
  Company Number: 2010US003172

PATIENT
  Age: 50 Year
  Sex: Female

DRUGS (6)
  1. LEXISCAN [Suspect]
     Indication: SCAN MYOCARDIAL PERFUSION
     Dosage: IV NOS
     Route: 042
  2. BENZTROPINE MESYLATE [Concomitant]
  3. LISINOPRIL [Concomitant]
  4. ASPIRIN [Concomitant]
  5. HALDOL [Concomitant]
  6. PERCOCET [Concomitant]

REACTIONS (3)
  - AGGRESSION [None]
  - AGITATION [None]
  - UNRESPONSIVE TO STIMULI [None]
